FAERS Safety Report 16533467 (Version 1)
Quarter: 2019Q3

REPORT INFORMATION
  Report Type: Spontaneous
  Country: US (occurrence: US)
  Receive Date: 20190705
  Receipt Date: 20190705
  Transmission Date: 20191004
  Serious: No
  Sender: FDA-Public Use
  Company Number: US-HORIZON-DUE-0381-2019

PATIENT
  Age: 79 Year
  Sex: Female

DRUGS (1)
  1. DUEXIS [Suspect]
     Active Substance: FAMOTIDINE\IBUPROFEN
     Indication: PAIN
     Dosage: ONE A DAY
     Dates: start: 201906

REACTIONS (4)
  - Intentional product use issue [Unknown]
  - Product colour issue [Unknown]
  - Nausea [Unknown]
  - Malaise [Unknown]
